FAERS Safety Report 5744318-9 (Version None)
Quarter: 2008Q2

REPORT INFORMATION
  Report Type: 
  Country: None (occurrence: None)
  Receive Date: 20080516
  Receipt Date: 20080516
  Transmission Date: 20081010
  Serious: Yes (Other)
  Sender: FDA-Public Use
  Company Number: None

PATIENT
  Age: 61 Year
  Sex: Male
  Weight: 80.7403 kg

DRUGS (1)
  1. CRESTOR [Suspect]
     Indication: BLOOD CHOLESTEROL INCREASED
     Dosage: 10 MG ONCE DAILY PO
     Route: 048
     Dates: start: 20050105, end: 20080501

REACTIONS (6)
  - ASTHENIA [None]
  - DECREASED ACTIVITY [None]
  - FEELING ABNORMAL [None]
  - HEPATOMEGALY [None]
  - PAIN [None]
  - SOMNOLENCE [None]
